FAERS Safety Report 13329379 (Version 1)
Quarter: 2017Q1

REPORT INFORMATION
  Report Type: Spontaneous
  Country: US (occurrence: US)
  Receive Date: 20170313
  Receipt Date: 20170313
  Transmission Date: 20170428
  Serious: No
  Sender: FDA-Public Use
  Company Number: US-BAYER-2017-047406

PATIENT
  Age: 86 Year
  Sex: Female
  Weight: 43 kg

DRUGS (1)
  1. MIRALAX [Suspect]
     Active Substance: POLYETHYLENE GLYCOL 3350
     Indication: GASTROINTESTINAL DISORDER
     Dosage: 3 DF, QD
     Route: 048
     Dates: start: 20170306, end: 20170309

REACTIONS (4)
  - Product use issue [Unknown]
  - Product use issue [Unknown]
  - Constipation [Not Recovered/Not Resolved]
  - Expired product administered [None]

NARRATIVE: CASE EVENT DATE: 20170306
